FAERS Safety Report 10641841 (Version 1)
Quarter: 2014Q4

REPORT INFORMATION
  Report Type: Spontaneous
  Country: US (occurrence: ES)
  Receive Date: 20141209
  Receipt Date: 20141209
  Transmission Date: 20150529
  Serious: Yes (Hospitalization)
  Sender: FDA-Public Use
  Company Number: ES-FRI-1000072885

PATIENT
  Age: 50 Year
  Sex: Female
  Weight: 69 kg

DRUGS (8)
  1. FLUTICASONA [Suspect]
     Active Substance: FLUTICASONE PROPIONATE
     Route: 055
     Dates: start: 2009
  2. LOSARTAN [Suspect]
     Active Substance: LOSARTAN
     Dates: start: 2014
  3. CITALOPRAM [Suspect]
     Active Substance: CITALOPRAM HYDROBROMIDE
     Dates: start: 2014
  4. EKLIRA [Suspect]
     Active Substance: ACLIDINIUM BROMIDE
     Dosage: 322 MICROGRAM
     Route: 055
     Dates: start: 2014
  5. XOLAIR [Suspect]
     Active Substance: OMALIZUMAB
     Indication: ASTHMA
     Dosage: 150 MG, 1 ML SYRINGE (TWICE MONTHLY)
     Dates: start: 201404
  6. VENTOLIN [Suspect]
     Active Substance: ALBUTEROL SULFATE
     Dosage: 100 MCG/PUFF
     Route: 055
     Dates: start: 2009
  7. ROFLUMILAST [Suspect]
     Active Substance: ROFLUMILAST
     Dosage: 500 MCG
     Route: 048
     Dates: start: 2009
  8. MONTELUKAST [Suspect]
     Active Substance: MONTELUKAST SODIUM
     Dates: start: 2009

REACTIONS (1)
  - Cerebrovascular accident [Recovered/Resolved with Sequelae]

NARRATIVE: CASE EVENT DATE: 20140915
